FAERS Safety Report 6113880-9 (Version None)
Quarter: 2009Q1

REPORT INFORMATION
  Report Type: 
  Country: None (occurrence: None)
  Receive Date: 20090312
  Receipt Date: 20080903
  Transmission Date: 20090719
  Serious: No
  Sender: FDA-Public Use
  Company Number: US-ABBOTT-08P-163-0459537-00

PATIENT
  Sex: Female
  Weight: 48.578 kg

DRUGS (3)
  1. LUPRON DEPOT [Suspect]
     Indication: ENDOMETRIOSIS
     Route: 030
     Dates: start: 20080612
  2. ACETAMINOPHEN W/ CODEINE [Concomitant]
     Indication: ENDOMETRIOSIS
     Route: 048
  3. ALPRAZOLAM [Concomitant]
     Indication: ANXIETY
     Route: 048

REACTIONS (3)
  - BREAST DISCHARGE [None]
  - BREAST PAIN [None]
  - METRORRHAGIA [None]
